APPROVED DRUG PRODUCT: FOAMCOAT
Active Ingredient: ALUMINUM HYDROXIDE; MAGNESIUM TRISILICATE
Strength: 80MG;20MG
Dosage Form/Route: TABLET, CHEWABLE;ORAL
Application: A071793 | Product #001
Applicant: GUARDIAN DRUG CO INC
Approved: Sep 4, 1987 | RLD: No | RS: No | Type: DISCN